FAERS Safety Report 10258198 (Version 1)
Quarter: 2014Q2

REPORT INFORMATION
  Report Type: Spontaneous
  Country: US (occurrence: None)
  Receive Date: 20140623
  Receipt Date: 20140623
  Transmission Date: 20141212
  Serious: Yes (Other)
  Sender: FDA-Public Use
  Company Number: 201406037

PATIENT
  Age: 54 Year
  Sex: Male

DRUGS (1)
  1. TESTIM [Suspect]
     Dates: start: 201202, end: 201208

REACTIONS (7)
  - Coronary artery disease [None]
  - Emotional disorder [None]
  - Myocardial infarction [None]
  - Cerebrovascular accident [None]
  - Injury [None]
  - Economic problem [None]
  - Unevaluable event [None]
